FAERS Safety Report 12762162 (Version 6)
Quarter: 2016Q4

REPORT INFORMATION
  Report Type: Spontaneous
  Country: FR (occurrence: FR)
  Receive Date: 20160920
  Receipt Date: 20161111
  Transmission Date: 20170207
  Serious: Yes (Other)
  Sender: FDA-Public Use
  Company Number: FR-PFIZER INC-2016434159

PATIENT
  Age: 17 Year
  Sex: Male

DRUGS (1)
  1. NOREPINEPHRINE BITARTRATE. [Suspect]
     Active Substance: NOREPINEPHRINE BITARTRATE
     Dosage: 2 MG, UNK
     Route: 040

REACTIONS (2)
  - Stress cardiomyopathy [Recovered/Resolved]
  - Incorrect drug administration rate [Unknown]
